FAERS Safety Report 8849097 (Version 2)
Quarter: 2012Q4

REPORT INFORMATION
  Report Type: 
  Country: MX (occurrence: MX)
  Receive Date: 20121019
  Receipt Date: 20121210
  Transmission Date: 20130627
  Serious: Yes (Other)
  Sender: FDA-Public Use
  Company Number: PHHY2012MX092956

PATIENT
  Sex: Male

DRUGS (9)
  1. EXFORGE HCT [Suspect]
     Indication: HYPERTENSION
     Dosage: 1 DF, (320/10/25 mg) per day
  2. EXFORGE HCT [Suspect]
     Dosage: 0.25 DF, (320/10/25 mg) per day
     Dates: start: 201208
  3. LANOXIN [Concomitant]
     Indication: CARDIAC DISORDER
     Dosage: 0.5 DF, per day
     Dates: start: 201203
  4. BRAXTAM [Concomitant]
     Indication: CARDIAC DISORDER
     Dosage: 1 DF, per day
     Dates: start: 201201
  5. DELATREN [Concomitant]
     Indication: CARDIAC DISORDER
     Dosage: 0.5 DF, per day
     Dates: start: 201203
  6. JANUMET [Concomitant]
     Indication: BLOOD GLUCOSE ABNORMAL
     Dosage: 1 DF, per day
     Dates: start: 2010
  7. MELOXICAM [Concomitant]
     Indication: PAIN
     Dosage: 1 DF, per day
     Dates: start: 201208
  8. DIACEREIN [Concomitant]
     Indication: PAIN
     Dosage: 1 DF, per day
     Dates: start: 201208
  9. OMEPRAZOL [Concomitant]
     Indication: GASTROINTESTINAL DISORDER
     Dosage: 1 DF, per day
     Dates: start: 201207

REACTIONS (5)
  - Cardiac failure [Recovered/Resolved]
  - Bronchitis [Not Recovered/Not Resolved]
  - Malaise [Not Recovered/Not Resolved]
  - Weight decreased [Recovered/Resolved]
  - Wrong technique in drug usage process [Recovered/Resolved]
